FAERS Safety Report 9370053 (Version 2)
Quarter: 2013Q3

REPORT INFORMATION
  Report Type: Spontaneous
  Country: IN (occurrence: IN)
  Receive Date: 20130626
  Receipt Date: 20130802
  Transmission Date: 20140515
  Serious: Yes (Life-Threatening, Other)
  Sender: FDA-Public Use
  Company Number: IN-ROXANE LABORATORIES, INC.-2013-RO-01006RO

PATIENT
  Age: 11 Month
  Sex: Male
  Weight: 6 kg

DRUGS (1)
  1. AMLODIPINE [Suspect]
     Dosage: 45 MG

REACTIONS (8)
  - Toxicity to various agents [Recovered/Resolved]
  - Drug dispensing error [Recovered/Resolved]
  - Shock [Recovered/Resolved]
  - Prerenal failure [Unknown]
  - Cardiac failure congestive [Unknown]
  - Pulmonary oedema [Unknown]
  - Respiratory distress [Unknown]
  - Metabolic acidosis [Unknown]
